FAERS Safety Report 17268586 (Version 1)
Quarter: 2020Q1

REPORT INFORMATION
  Report Type: Spontaneous
  Country: US (occurrence: US)
  Receive Date: 20191223
  Receipt Date: 20191223
  Transmission Date: 20200409
  Serious: No
  Sender: FDA-Public Use
  Company Number: None

PATIENT
  Age: 21 Year
  Sex: Female

DRUGS (4)
  1. NORTHERA [Suspect]
     Active Substance: DROXIDOPA
     Indication: ORTHOSTATIC HYPERTENSION
     Route: 048
     Dates: start: 20180306
  2. TRINTELLIX [Concomitant]
     Active Substance: VORTIOXETINE HYDROBROMIDE
  3. CORLANOR [Concomitant]
     Active Substance: IVABRADINE HYDROCHLORIDE
  4. FLUDROCORT [Concomitant]

REACTIONS (2)
  - Product dose omission [None]
  - Malaise [None]

NARRATIVE: CASE EVENT DATE: 20191223
